FAERS Safety Report 21800555 (Version 3)
Quarter: 2023Q1

REPORT INFORMATION
  Report Type: Report from Study
  Country: MX (occurrence: MX)
  Receive Date: 20221230
  Receipt Date: 20230127
  Transmission Date: 20230418
  Serious: Yes (Hospitalization)
  Sender: FDA-Public Use
  Company Number: MX-BAYER-2022A163461

PATIENT
  Age: 48 Year
  Sex: Male

DRUGS (5)
  1. NEXAVAR [Suspect]
     Active Substance: SORAFENIB
     Indication: Renal cell carcinoma
     Dosage: 400 MG, BID (2 PILLS IN THE MORNING AND 2 AT NIGHT)
     Dates: start: 20221023, end: 20221121
  2. PIROXICAM [Concomitant]
     Active Substance: PIROXICAM
     Dosage: PACKET 3 TIMES A DAY BEFORE MEALS
     Dates: start: 20221003
  3. PIROXICAM [Concomitant]
     Active Substance: PIROXICAM
     Dosage: 10 MILLILITRES BY MOUTH EVERY 8 HOURS
     Route: 048
     Dates: start: 20221107
  4. PHENYTOIN [Concomitant]
     Active Substance: PHENYTOIN
     Indication: Seizure
     Dosage: 100 MILLIGRAMS BY MOUTH EVERY 12 HOURS
     Route: 048
     Dates: start: 20221003
  5. DARBEPOETIN ALFA [Concomitant]
     Active Substance: DARBEPOETIN ALFA
     Indication: Nephrogenic anaemia
     Dosage: 30 MICROGRAMS INTRAMUSCULAR EVERY 21 DAYS
     Dates: start: 202209

REACTIONS (10)
  - Hypotension [Recovered/Resolved]
  - Abdominal pain upper [Recovered/Resolved with Sequelae]
  - Dizziness postural [Recovered/Resolved with Sequelae]
  - Constipation [Not Recovered/Not Resolved]
  - Abdominal pain upper [Recovering/Resolving]
  - Fatigue [Recovered/Resolved]
  - Decreased appetite [Recovered/Resolved]
  - Abdominal pain upper [Recovering/Resolving]
  - Food refusal [Recovering/Resolving]
  - Dehydration [Recovered/Resolved]

NARRATIVE: CASE EVENT DATE: 20221024
